FAERS Safety Report 9761007 (Version 2)
Quarter: 2014Q1

REPORT INFORMATION
  Report Type: Spontaneous
  Country: US (occurrence: US)
  Receive Date: 20131216
  Receipt Date: 20140207
  Transmission Date: 20141002
  Serious: Yes (Other)
  Sender: FDA-Public Use
  Company Number: US-PFIZER INC-2013356762

PATIENT
  Age: 65 Year
  Sex: Female
  Weight: 59.9 kg

DRUGS (3)
  1. XELJANZ [Suspect]
     Indication: RHEUMATOID ARTHRITIS
     Dosage: 5MG, TWICE DAILY
     Dates: start: 201309, end: 2014
  2. XELJANZ [Suspect]
     Indication: OSTEOARTHRITIS
  3. PREDNISONE [Concomitant]
     Indication: ARTHRITIS
     Dosage: 10 MG, DAILY
     Dates: start: 2013

REACTIONS (6)
  - Vision blurred [Not Recovered/Not Resolved]
  - Visual acuity reduced [Not Recovered/Not Resolved]
  - Diplopia [Not Recovered/Not Resolved]
  - Faeces pale [Recovered/Resolved]
  - Fatigue [Recovered/Resolved]
  - Pain in extremity [Recovered/Resolved]
